FAERS Safety Report 7716120-X (Version None)
Quarter: 2011Q3

REPORT INFORMATION
  Report Type: 
  Country: None (occurrence: None)
  Receive Date: 20110829
  Receipt Date: 20110819
  Transmission Date: 20111222
  Serious: Yes (Death, Hospitalization)
  Sender: FDA-Public Use
  Company Number: US-GLAXOSMITHKLINE-B0742647A

PATIENT
  Age: 70 Year
  Sex: Male

DRUGS (1)
  1. AVANDIA [Suspect]
     Indication: DIABETES MELLITUS
     Route: 048
     Dates: start: 20020503, end: 20100624

REACTIONS (5)
  - DEATH [None]
  - MITRAL VALVE REPAIR [None]
  - MYOCARDIAL INFARCTION [None]
  - TRICUSPID VALVE REPAIR [None]
  - CORONARY ARTERY BYPASS [None]
